FAERS Safety Report 15049272 (Version 1)
Quarter: 2018Q2

REPORT INFORMATION
  Report Type: Spontaneous
  Country: AU (occurrence: AU)
  Receive Date: 20180622
  Receipt Date: 20180622
  Transmission Date: 20180711
  Serious: Yes (Life-Threatening, Hospitalization, Other)
  Sender: FDA-Public Use
  Company Number: AU-009507513-2008SP015381

PATIENT
  Age: 66 Year
  Sex: Female

DRUGS (4)
  1. TEMODAL [Suspect]
     Active Substance: TEMOZOLOMIDE
     Indication: GLIOBLASTOMA
     Dosage: 140 MG, QD
     Route: 048
     Dates: start: 20080510, end: 20080602
  2. OMEPRAZOLE. [Concomitant]
     Active Substance: OMEPRAZOLE
     Dosage: UNK
  3. LEVOTHYROXINE SODIUM. [Concomitant]
     Active Substance: LEVOTHYROXINE SODIUM
     Dosage: UNK
  4. BACTRIM DS [Suspect]
     Active Substance: SULFAMETHOXAZOLE\TRIMETHOPRIM
     Dosage: UNK

REACTIONS (5)
  - Liver abscess [Recovering/Resolving]
  - Pseudomonas infection [Recovering/Resolving]
  - Bone marrow failure [Recovering/Resolving]
  - Fungal sepsis [Recovering/Resolving]
  - Lung abscess [Unknown]

NARRATIVE: CASE EVENT DATE: 20080526
